FAERS Safety Report 18315992 (Version 1)
Quarter: 2020Q3

REPORT INFORMATION
  Report Type: Spontaneous
  Country: DE (occurrence: DE)
  Receive Date: 20200927
  Receipt Date: 20200927
  Transmission Date: 20201103
  Serious: Yes (Hospitalization)
  Sender: FDA-Public Use
  Company Number: DE-TEVA-2020-DE-1831396

PATIENT
  Age: 73 Year
  Sex: Male
  Weight: 78 kg

DRUGS (7)
  1. IRINOTECAN [Suspect]
     Active Substance: IRINOTECAN
     Dosage: NK MG, LAST 10?AUG?2020
     Route: 065
  2. LEVOTHYROXIN?NATRIUM [Concomitant]
     Active Substance: LEVOTHYROXINE SODIUM
     Dosage: 125 MICROGRAM DAILY; 1?0?0?0
  3. FLUOROURACIL. [Suspect]
     Active Substance: FLUOROURACIL
     Dosage: NK MG, LAST 10?AUG?2020
     Route: 065
  4. OXALIPLATIN. [Suspect]
     Active Substance: OXALIPLATIN
     Dosage: NK MG, LAST 10?AUG?2020
     Route: 065
  5. FOLIC ACID. [Suspect]
     Active Substance: FOLIC ACID
     Dosage: NK MG, LAST 10?AUG?2020
     Route: 065
  6. KREON 25000E. [Concomitant]
     Dosage: 3 DOSAGE FORMS DAILY; 25.00 IU, 1?1?1?0
  7. INSULIN DEGLUDEC [Concomitant]
     Active Substance: INSULIN DEGLUDEC
     Dosage: 14 IU (INTERNATIONAL UNIT) DAILY;  0?0?1?0
     Route: 058

REACTIONS (4)
  - Dizziness [Unknown]
  - General physical health deterioration [Unknown]
  - Fatigue [Unknown]
  - Condition aggravated [Unknown]
